FAERS Safety Report 9610850 (Version 2)
Quarter: 2013Q4

REPORT INFORMATION
  Report Type: Report from Study
  Country: CA (occurrence: CA)
  Receive Date: 20131009
  Receipt Date: 20131009
  Transmission Date: 20140711
  Serious: Yes (Other)
  Sender: FDA-Public Use
  Company Number: CA-UCBSA-071522

PATIENT
  Age: 39 Year
  Sex: Female
  Weight: 45 kg

DRUGS (7)
  1. CIMZIA [Suspect]
     Indication: SPONDYLITIS
     Route: 058
     Dates: start: 20121022, end: 20121105
  2. CIMZIA [Suspect]
     Indication: SPONDYLITIS
     Route: 058
     Dates: start: 20121205, end: 201309
  3. TRAMACET [Concomitant]
     Indication: PAIN
     Dosage: THREE TIMES IN DAY
     Route: 048
  4. PERCOCET [Concomitant]
     Indication: PAIN
     Dosage: EVERY 4-6 HOURS,UNIT MG
     Route: 048
  5. VALIUM [Concomitant]
     Indication: INSOMNIA
     Dosage: BED TIME
     Route: 048
  6. VALIUM [Concomitant]
     Indication: PAIN
     Dosage: BED TIME
     Route: 048
  7. VALIUM [Concomitant]
     Indication: ANXIETY
     Dosage: BED TIME
     Route: 048

REACTIONS (7)
  - Escherichia infection [Not Recovered/Not Resolved]
  - Urinary tract infection [Not Recovered/Not Resolved]
  - Vulvovaginal mycotic infection [Not Recovered/Not Resolved]
  - Mucous stools [Not Recovered/Not Resolved]
  - Haematochezia [Recovered/Resolved]
  - Diarrhoea [Recovered/Resolved]
  - Dysmenorrhoea [Unknown]
